FAERS Safety Report 23524210 (Version 1)
Quarter: 2024Q1

REPORT INFORMATION
  Report Type: Spontaneous
  Country: CA (occurrence: CA)
  Receive Date: 20240214
  Receipt Date: 20240214
  Transmission Date: 20240409
  Serious: Yes (Hospitalization, Other)
  Sender: FDA-Public Use
  Company Number: CA-HLS-202400320

PATIENT
  Sex: Male

DRUGS (9)
  1. ARIPIPRAZOLE [Suspect]
     Active Substance: ARIPIPRAZOLE
     Indication: Schizophrenia
     Dosage: NOT SPECIFIED DOSAGE FORM
     Route: 065
  2. CLOZAPINE [Suspect]
     Active Substance: CLOZAPINE
     Indication: Schizophrenia
     Dosage: TABLETS DOSAGE FORM
     Route: 065
  3. OLANZAPINE [Suspect]
     Active Substance: OLANZAPINE
     Indication: Schizophrenia
     Dosage: NOT SPECIFIED DOSAGE FORM
     Route: 065
  4. RISPERIDONE [Suspect]
     Active Substance: RISPERIDONE
     Indication: Schizophrenia
     Dosage: 1 EVERY 1 DAYS?AMOUNT: 2 MILLIGRAM
     Route: 065
  5. RISPERIDONE [Suspect]
     Active Substance: RISPERIDONE
     Indication: Product used for unknown indication
     Dosage: 1 EVERY 1 DAYS?AMOUNT: 2 MILLIGRAM
     Route: 065
  6. RISPERIDONE [Suspect]
     Active Substance: RISPERIDONE
     Indication: Schizophrenia
     Dosage: 1 EVERY 1 DAYS?AMOUNT: 3 MILLIGRAM
     Route: 065
  7. RISPERIDONE [Suspect]
     Active Substance: RISPERIDONE
     Indication: Product used for unknown indication
     Dosage: 1 EVERY 1 DAYS?AMOUNT: 3 MILLIGRAM
     Route: 065
  8. RISPERIDONE [Suspect]
     Active Substance: RISPERIDONE
     Indication: Schizophrenia
     Dosage: 1 EVERY 1 DAYS?AMOUNT: 4 MILLIGRAM?NOT SPECIFIED DOSAGE FORM
     Route: 065
  9. RISPERIDONE [Suspect]
     Active Substance: RISPERIDONE
     Indication: Product used for unknown indication
     Dosage: 1 EVERY 1 DAYS?AMOUNT: 4 MILLIGRAM?NOT SPECIFIED DOSAGE FORM
     Route: 065

REACTIONS (6)
  - Constipation [Recovered/Resolved]
  - Drug ineffective [Recovered/Resolved]
  - Full blood count abnormal [Recovered/Resolved]
  - Heart rate increased [Recovered/Resolved]
  - Schizophrenia [Recovered/Resolved]
  - Weight increased [Recovered/Resolved]
